FAERS Safety Report 21502259 (Version 4)
Quarter: 2023Q1

REPORT INFORMATION
  Report Type: Report from Study
  Country: TR (occurrence: None)
  Receive Date: 20221025
  Receipt Date: 20230321
  Transmission Date: 20230417
  Serious: Yes (Life-Threatening, Hospitalization)
  Sender: FDA-Public Use
  Company Number: TR-ROCHE-2666788

PATIENT
  Age: 75 Year
  Sex: Female
  Weight: 87 kg

DRUGS (45)
  1. ATEZOLIZUMAB [Suspect]
     Active Substance: ATEZOLIZUMAB
     Indication: Malignant neoplasm of unknown primary site
     Dosage: DATE OF LAST DOSE OF ATEZOLIZUMAB PRIOR TO EVENT ONSET: 25/AUG/2020
     Route: 041
     Dates: start: 20200430
  2. CARBOPLATIN [Suspect]
     Active Substance: CARBOPLATIN
     Indication: Malignant neoplasm of unknown primary site
     Dosage: AREA UNDER THE CURVE (AUC) DOSE?DATE OF LAST DOSE OF CARBOPLATTIN PRIOR TO EVENT ONSET: 08/APR/2020
     Route: 042
     Dates: start: 20200225
  3. CARBOPLATIN [Suspect]
     Active Substance: CARBOPLATIN
     Dosage: AREA UNDER THE CURVE (AUC) DOSE?DATE OF LAST DOSE OF CARBOPLATTIN PRIOR TO EVENT ONSET: 25/AUG/2020
     Route: 042
     Dates: start: 20200430
  4. PACLITAXEL [Suspect]
     Active Substance: PACLITAXEL
     Indication: Malignant neoplasm of unknown primary site
     Dosage: DATE OF LAST DOSE OF PACLITAXEL PRIOR TO EVENT ONSET: 08/APR/2020 (250 MG)
     Route: 042
     Dates: start: 20200225
  5. PACLITAXEL [Suspect]
     Active Substance: PACLITAXEL
     Dosage: DATE OF LAST DOSE OF PACLITAXEL PRIOR TO EVENT ONSET: 25/AUG/2020 (220 MG)
     Route: 042
     Dates: start: 20200430
  6. ALOXI [Concomitant]
     Active Substance: PALONOSETRON HYDROCHLORIDE
     Route: 042
     Dates: start: 20200729, end: 20200729
  7. ALOXI [Concomitant]
     Active Substance: PALONOSETRON HYDROCHLORIDE
     Route: 042
     Dates: start: 20200617, end: 20200617
  8. ALOXI [Concomitant]
     Active Substance: PALONOSETRON HYDROCHLORIDE
     Route: 042
     Dates: start: 20200825, end: 20200825
  9. RANITIDINE HYDROCHLORIDE [Concomitant]
     Active Substance: RANITIDINE HYDROCHLORIDE
     Route: 042
     Dates: start: 20200729, end: 20200729
  10. RANITIDINE HYDROCHLORIDE [Concomitant]
     Active Substance: RANITIDINE HYDROCHLORIDE
     Route: 042
     Dates: start: 20200617, end: 20200617
  11. RANITIDINE HYDROCHLORIDE [Concomitant]
     Active Substance: RANITIDINE HYDROCHLORIDE
     Route: 042
     Dates: start: 20200528, end: 20200528
  12. RANITIDINE HYDROCHLORIDE [Concomitant]
     Active Substance: RANITIDINE HYDROCHLORIDE
     Route: 042
     Dates: start: 20200430, end: 20200430
  13. RANITIDINE HYDROCHLORIDE [Concomitant]
     Active Substance: RANITIDINE HYDROCHLORIDE
     Route: 042
     Dates: start: 20200825, end: 20200825
  14. DEKORT [Concomitant]
     Active Substance: DEXAMETHASONE
     Route: 042
     Dates: start: 20200729, end: 20200729
  15. DEKORT [Concomitant]
     Active Substance: DEXAMETHASONE
     Route: 042
     Dates: start: 20200617, end: 20200617
  16. DEKORT [Concomitant]
     Active Substance: DEXAMETHASONE
     Route: 042
     Dates: start: 20200528, end: 20200528
  17. DEKORT [Concomitant]
     Active Substance: DEXAMETHASONE
     Route: 042
     Dates: start: 20200430, end: 20200430
  18. DEKORT [Concomitant]
     Active Substance: DEXAMETHASONE
     Route: 042
     Dates: start: 20200825, end: 20200825
  19. FRAVEN [Concomitant]
     Route: 058
     Dates: start: 20200618, end: 20200622
  20. FRAVEN [Concomitant]
     Route: 058
     Dates: start: 20200529, end: 20200603
  21. FRAVEN [Concomitant]
     Route: 058
     Dates: start: 20200501, end: 20200506
  22. FRAVEN [Concomitant]
     Route: 058
     Dates: start: 20200826, end: 20200826
  23. FRAVEN [Concomitant]
     Route: 058
     Dates: start: 20200826, end: 20200830
  24. PHENIRAMINE [Concomitant]
     Active Substance: PHENIRAMINE
     Route: 042
     Dates: start: 20200617, end: 20200617
  25. PHENIRAMINE [Concomitant]
     Active Substance: PHENIRAMINE
     Route: 042
     Dates: start: 20200528, end: 20200528
  26. PHENIRAMINE [Concomitant]
     Active Substance: PHENIRAMINE
     Route: 042
     Dates: start: 20200430, end: 20200430
  27. PHENIRAMINE [Concomitant]
     Active Substance: PHENIRAMINE
     Route: 042
     Dates: start: 20200825, end: 20200825
  28. PHENIRAMINE [Concomitant]
     Active Substance: PHENIRAMINE
     Route: 042
     Dates: start: 20200828, end: 20200831
  29. BETAHISTINE [Concomitant]
     Active Substance: BETAHISTINE
     Route: 048
     Dates: start: 20200521, end: 20200521
  30. BEKUNIS (TURKEY) [Concomitant]
     Route: 048
     Dates: start: 20200501, end: 20200703
  31. ZOFRAN [Concomitant]
     Active Substance: ONDANSETRON HYDROCHLORIDE
     Route: 042
     Dates: start: 20200528, end: 20200528
  32. ZOFRAN [Concomitant]
     Active Substance: ONDANSETRON HYDROCHLORIDE
     Route: 042
     Dates: start: 20200430, end: 20200430
  33. MONUROL [Concomitant]
     Active Substance: FOSFOMYCIN TROMETHAMINE
     Indication: Urinary tract infection
     Route: 048
     Dates: start: 20200422, end: 20200422
  34. BUTYLSCOPOLAMINE BROMIDE [Concomitant]
     Active Substance: BUTYLSCOPOLAMINE BROMIDE
     Route: 048
     Dates: start: 20200221
  35. PAROL [Concomitant]
     Active Substance: ACETAMINOPHEN
     Route: 048
     Dates: start: 20200312
  36. PAROL [Concomitant]
     Active Substance: ACETAMINOPHEN
     Route: 042
     Dates: start: 20200828, end: 20200828
  37. GRANEXA [Concomitant]
     Route: 048
     Dates: start: 20200224, end: 20200620
  38. OCERAL [Concomitant]
     Route: 061
     Dates: end: 20200701
  39. SERTACONAZOLE NITRATE [Concomitant]
     Active Substance: SERTACONAZOLE NITRATE
     Route: 061
     Dates: end: 20200701
  40. LANSOPRAZOLE [Concomitant]
     Active Substance: LANSOPRAZOLE
     Indication: Prophylaxis
     Route: 048
  41. PROPRANOLOL HYDROCHLORIDE [Concomitant]
     Active Substance: PROPRANOLOL HYDROCHLORIDE
     Route: 048
  42. EUTHYROX [Concomitant]
     Active Substance: LEVOTHYROXINE SODIUM
     Route: 048
  43. ULCEZOL (ITALY) [Concomitant]
     Route: 042
     Dates: start: 20200825
  44. OKSAPAR [Concomitant]
     Indication: Pulmonary embolism
     Route: 058
     Dates: start: 20200825, end: 20200826
  45. PIRACETAM [Concomitant]
     Active Substance: PIRACETAM
     Route: 042
     Dates: start: 20200824, end: 20200824

REACTIONS (3)
  - Pulmonary oedema [Recovered/Resolved]
  - Dyspnoea [Recovered/Resolved]
  - Rash maculo-papular [Recovered/Resolved]

NARRATIVE: CASE EVENT DATE: 20200825
